FAERS Safety Report 6874787-2 (Version None)
Quarter: 2010Q3

REPORT INFORMATION
  Report Type: 
  Country: None (occurrence: None)
  Receive Date: 20100723
  Receipt Date: 20100721
  Transmission Date: 20110219
  Serious: Yes (Hospitalization)
  Sender: FDA-Public Use
  Company Number: 1022556-2010-00046

PATIENT
  Sex: Female

DRUGS (1)
  1. CAPZASIN NO-MESS LIQUID 1OZ [Suspect]
     Indication: ARTHRALGIA
     Dosage: TOPICAL
     Route: 061

REACTIONS (4)
  - BLOOD PRESSURE DECREASED [None]
  - BURNING SENSATION [None]
  - MALAISE [None]
  - PAIN [None]
